FAERS Safety Report 5446024-7 (Version None)
Quarter: 2007Q3

REPORT INFORMATION
  Report Type: 
  Country: None (occurrence: None)
  Receive Date: 20070907
  Receipt Date: 20070830
  Transmission Date: 20080115
  Serious: Yes (Hospitalization, Other)
  Sender: FDA-Public Use
  Company Number: US-ELI_LILLY_AND_COMPANY-US200708007057

PATIENT
  Age: 71 Year
  Sex: Female

DRUGS (7)
  1. ILETIN [Suspect]
     Dates: start: 19390101, end: 19970101
  2. HUMULIN N [Suspect]
     Dosage: 6 U, EACH MORNING
  3. HUMALOG [Suspect]
     Dosage: 7 U, EACH MORNING
  4. HUMALOG [Suspect]
     Dosage: 3 U, EACH EVENING
  5. HUMALOG [Suspect]
     Dosage: UNK, AS NEEDED
  6. PROTAMINE ZINC + ILETIN I (BEEF-PORK) [Suspect]
     Indication: TYPE 1 DIABETES MELLITUS
     Dates: start: 19390101, end: 19970101
  7. GLUCAGON [Suspect]
     Dates: start: 20020101

REACTIONS (6)
  - BLOOD GLUCOSE DECREASED [None]
  - BLOOD GLUCOSE INCREASED [None]
  - CATARACT [None]
  - DAWN PHENOMENON [None]
  - LOSS OF CONSCIOUSNESS [None]
  - VISUAL DISTURBANCE [None]
